FAERS Safety Report 4728857-5 (Version None)
Quarter: 2005Q3

REPORT INFORMATION
  Report Type: 
  Country: None (occurrence: None)
  Receive Date: 20050729
  Receipt Date: 20050413
  Transmission Date: 20060218
  Serious: No
  Sender: FDA-Public Use
  Company Number: US-GLAXOSMITHKLINE-A0554008A

PATIENT
  Age: 43 Year
  Sex: Female

DRUGS (6)
  1. IMITREX [Suspect]
     Indication: MIGRAINE
     Dosage: 100MG AS REQUIRED
     Route: 048
  2. AMBIEN [Concomitant]
  3. CELEXA [Concomitant]
  4. TYLENOL SINUS [Concomitant]
  5. EXCEDRIN (MIGRAINE) [Concomitant]
  6. ENPRIL [Concomitant]

REACTIONS (1)
  - DRUG SCREEN FALSE POSITIVE [None]
